FAERS Safety Report 6727967-0 (Version None)
Quarter: 2010Q2

REPORT INFORMATION
  Report Type: 
  Country: None (occurrence: None)
  Receive Date: 20100517
  Receipt Date: 20100511
  Transmission Date: 20101027
  Serious: Yes (Hospitalization, Other)
  Sender: FDA-Public Use
  Company Number: US-JNJFOC-20100504817

PATIENT
  Sex: Male
  Weight: 97.52 kg

DRUGS (8)
  1. DURAGESIC-100 [Suspect]
     Indication: PAIN
     Route: 062
  2. DURAGESIC-100 [Suspect]
     Route: 062
  3. NIFEDIPINE [Concomitant]
     Indication: BLOOD PRESSURE ABNORMAL
     Route: 048
  4. LYRICA [Concomitant]
     Indication: PAIN
     Route: 048
  5. CITALOPRAM [Concomitant]
     Indication: DEPRESSION
     Route: 048
  6. DICLOFENAC [Concomitant]
     Indication: OEDEMA PERIPHERAL
     Route: 048
  7. ALLOPURINOL [Concomitant]
     Indication: GOUT
     Route: 048
  8. TRAMADOL HCL [Concomitant]
     Indication: PAIN IN EXTREMITY
     Route: 048

REACTIONS (9)
  - BLADDER PAIN [None]
  - CEREBROVASCULAR ACCIDENT [None]
  - CHOLECYSTECTOMY [None]
  - DRUG ADMINISTERED AT INAPPROPRIATE SITE [None]
  - HOSPITALISATION [None]
  - NAUSEA [None]
  - PROSTATE CANCER [None]
  - SLEEP DISORDER [None]
  - WRONG TECHNIQUE IN DRUG USAGE PROCESS [None]
